FAERS Safety Report 5077447-6 (Version None)
Quarter: 2006Q3

REPORT INFORMATION
  Report Type: 
  Country: None (occurrence: None)
  Receive Date: 20060810
  Receipt Date: 20060228
  Transmission Date: 20061208
  Serious: No
  Sender: FDA-Public Use
  Company Number: US-GLAXOSMITHKLINE-A0595548A

PATIENT
  Sex: Female

DRUGS (3)
  1. PAROXETINE HCL [Suspect]
     Indication: DEPRESSION
     Dosage: 10MG ALTERNATE DAYS
     Route: 048
  2. LEVOTHROID [Concomitant]
  3. ACCUPRIL [Concomitant]

REACTIONS (2)
  - CONSTIPATION [None]
  - HOT FLUSH [None]
